FAERS Safety Report 6417686-2 (Version None)
Quarter: 2009Q4

REPORT INFORMATION
  Report Type: 
  Country: None (occurrence: None)
  Receive Date: 20091026
  Receipt Date: 20091013
  Transmission Date: 20100525
  Serious: Yes (Other)
  Sender: FDA-Public Use
  Company Number: ADR40162009

PATIENT
  Age: 53 Year
  Sex: Male

DRUGS (16)
  1. SIMVASTATIN [Suspect]
     Indication: HYPERLIPIDAEMIA
     Dosage: 40 MG
     Route: 048
     Dates: start: 20090115, end: 20090116
  2. ASPIRIN [Concomitant]
  3. CO-CODAMOL [Concomitant]
  4. E45 ITCH RELIEF [Concomitant]
  5. GABAPENTIN [Concomitant]
  6. ISPAGHULA HUSK [Concomitant]
  7. KETOCONAZOLE [Concomitant]
  8. MORPHINE SULFATE [Concomitant]
  9. MUCOPOLYSACCHARIDE POLYSULPHATE [Concomitant]
  10. NAPROXEN [Concomitant]
  11. OXYCODONE HCL [Concomitant]
  12. PARACETAMOL [Concomitant]
  13. PEPCID [Concomitant]
  14. SALICYLIC ACID [Concomitant]
  15. SENNA [Concomitant]
  16. TRAMADOL HCL [Concomitant]

REACTIONS (2)
  - RASH [None]
  - SWELLING FACE [None]
